FAERS Safety Report 5399667-3 (Version None)
Quarter: 2007Q3

REPORT INFORMATION
  Report Type: 
  Country: None (occurrence: None)
  Receive Date: 20070727
  Receipt Date: 20070717
  Transmission Date: 20080115
  Serious: Yes (Hospitalization)
  Sender: FDA-Public Use
  Company Number: CH-PFIZER INC-2007058192

PATIENT
  Sex: Male

DRUGS (6)
  1. SPIRONOLACTONE [Suspect]
     Indication: ESSENTIAL HYPERTENSION
     Route: 048
  2. TORSEMIDE [Suspect]
     Indication: ESSENTIAL HYPERTENSION
     Route: 048
  3. ZESTRIL [Suspect]
     Indication: ESSENTIAL HYPERTENSION
     Route: 048
  4. SINTROM [Concomitant]
     Route: 048
  5. CARVEDILOL [Concomitant]
     Route: 048
  6. CORDARONE [Concomitant]
     Route: 048

REACTIONS (6)
  - BLOOD POTASSIUM INCREASED [None]
  - CARDIOGENIC SHOCK [None]
  - HYPONATRAEMIA [None]
  - HYPOTENSION [None]
  - RENAL FAILURE ACUTE [None]
  - TACHYCARDIA [None]
